FAERS Safety Report 7270506-9 (Version None)
Quarter: 2011Q1

REPORT INFORMATION
  Report Type: 
  Country: None (occurrence: None)
  Receive Date: 20110202
  Receipt Date: 20110125
  Transmission Date: 20110831
  Serious: Yes (Other)
  Sender: FDA-Public Use
  Company Number: GB-TEVA-256564ISR

PATIENT
  Age: 49 Year
  Sex: Male
  Weight: 106 kg

DRUGS (2)
  1. DOXAZOSIN [Suspect]
     Route: 048
     Dates: start: 20100922
  2. DOXAZOSIN [Suspect]
     Indication: HYPERTENSION
     Route: 048
     Dates: start: 20100816, end: 20100901

REACTIONS (7)
  - LETHARGY [None]
  - AURA [None]
  - FATIGUE [None]
  - NECK PAIN [None]
  - TUNNEL VISION [None]
  - FACE OEDEMA [None]
  - MUSCULOSKELETAL STIFFNESS [None]
